FAERS Safety Report 4273170-6 (Version None)
Quarter: 2004Q1

REPORT INFORMATION
  Report Type: 
  Country: None (occurrence: None)
  Receive Date: 20040116
  Receipt Date: 20031208
  Transmission Date: 20041129
  Serious: Yes (Hospitalization, Disabling, Other)
  Sender: FDA-Public Use
  Company Number: WAES 0312USA01014

PATIENT
  Sex: Male
  Weight: 123 kg

DRUGS (15)
  1. [THERAPY UNSPECIFIED] [Concomitant]
  2. FOSAMAX [Concomitant]
     Route: 048
  3. COREG [Concomitant]
  4. PLAVIX [Concomitant]
  5. LEXAPRO [Concomitant]
  6. LASIX [Concomitant]
  7. INSULIN [Concomitant]
  8. IMDUR [Concomitant]
  9. ATIVAN [Concomitant]
  10. REMERON [Concomitant]
  11. MS CONTIN [Concomitant]
  12. PROTONIX [Concomitant]
  13. ZOCOR [Suspect]
     Indication: DIABETES MELLITUS
     Route: 048
     Dates: start: 20030501, end: 20031119
  14. ZOCOR [Suspect]
     Indication: CORONARY ARTERY DISEASE
     Route: 048
     Dates: start: 20030501, end: 20031119
  15. AMBIEN [Concomitant]

REACTIONS (7)
  - BLOOD CREATINE PHOSPHOKINASE INCREASED [None]
  - CORONARY ARTERY DISEASE [None]
  - DIFFICULTY IN WALKING [None]
  - FALL [None]
  - MUSCULAR WEAKNESS [None]
  - MYOPATHY [None]
  - RED BLOOD CELL SEDIMENTATION RATE INCREASED [None]
